FAERS Safety Report 24369145 (Version 2)
Quarter: 2024Q4

REPORT INFORMATION
  Report Type: Report from Study
  Country: AU (occurrence: AU)
  Receive Date: 20240927
  Receipt Date: 20241029
  Transmission Date: 20250115
  Serious: Yes (Other)
  Sender: BIOGEN
  Company Number: AU-BIOGEN-2024BI01283492

PATIENT
  Age: 44 Year
  Sex: Male

DRUGS (1)
  1. TOFERSEN [Suspect]
     Active Substance: TOFERSEN
     Indication: Product used for unknown indication
     Route: 050
     Dates: start: 202403

REACTIONS (2)
  - Mononuclear cell count increased [Not Recovered/Not Resolved]
  - CSF protein increased [Not Recovered/Not Resolved]

NARRATIVE: CASE EVENT DATE: 20240731
